FAERS Safety Report 4979034-4 (Version None)
Quarter: 2006Q2

REPORT INFORMATION
  Report Type: 
  Country: None (occurrence: None)
  Receive Date: 20060419
  Receipt Date: 20060419
  Transmission Date: 20061013
  Serious: No
  Sender: FDA-Public Use
  Company Number: None

PATIENT
  Sex: Male
  Weight: 79.8331 kg

DRUGS (7)
  1. OXALIPLATIN 130 MG/M2 = 271 MG [Suspect]
     Indication: DISEASE RECURRENCE
     Dosage: 271 MG ONCE Q 21 DAYS IV
     Route: 042
     Dates: start: 20060222
  2. OXALIPLATIN 130 MG/M2 = 271 MG [Suspect]
     Indication: TONSIL CANCER
     Dosage: 271 MG ONCE Q 21 DAYS IV
     Route: 042
     Dates: start: 20060222
  3. DOCETAXEL 60 MG/M2 = 125 MG [Suspect]
     Indication: DISEASE RECURRENCE
     Dosage: 125 MG ONCE Q 21 DAYS IV
     Route: 042
     Dates: start: 20060222
  4. DOCETAXEL 60 MG/M2 = 125 MG [Suspect]
     Indication: TONSIL CANCER
     Dosage: 125 MG ONCE Q 21 DAYS IV
     Route: 042
     Dates: start: 20060222
  5. APPREPITANT [Concomitant]
  6. DEXAMETHASONE [Concomitant]
  7. ONDANSETRON [Concomitant]

REACTIONS (1)
  - FEBRILE NEUTROPENIA [None]
